FAERS Safety Report 18450011 (Version 1)
Quarter: 2020Q4

REPORT INFORMATION
  Report Type: Spontaneous
  Country: US (occurrence: US)
  Receive Date: 20201030
  Receipt Date: 20201030
  Transmission Date: 20210114
  Serious: Yes (Hospitalization)
  Sender: FDA-Public Use
  Company Number: US-TEVA-2020-US-1842067

PATIENT
  Age: 71 Year
  Sex: Male

DRUGS (2)
  1. CISPLATIN. [Suspect]
     Active Substance: CISPLATIN
     Indication: SMALL CELL LUNG CANCER LIMITED STAGE
     Dosage: THE THIRD CYCLE WAS COMPLETED ONE WEEK PRIOR TO ADMISSION.
     Route: 065
  2. ETOPOSIDE. [Concomitant]
     Active Substance: ETOPOSIDE
     Indication: SMALL CELL LUNG CANCER LIMITED STAGE
     Dosage: THE THIRD CYCLE WAS COMPLETED ONE WEEK PRIOR TO ADMISSION
     Route: 065

REACTIONS (3)
  - Hypocalcaemia [Recovering/Resolving]
  - Endocrine disorder [Recovering/Resolving]
  - Hypomagnesaemia [Recovering/Resolving]
